FAERS Safety Report 12446713 (Version 1)
Quarter: 2016Q2

REPORT INFORMATION
  Report Type: Spontaneous
  Country: AU (occurrence: None)
  Receive Date: 20160607
  Receipt Date: 20160607
  Transmission Date: 20160815
  Serious: Yes (Disabling)
  Sender: FDA-Public Use
  Company Number: None

PATIENT
  Age: 70 Year
  Sex: Female
  Weight: 52.62 kg

DRUGS (4)
  1. FISH OIL [Concomitant]
     Active Substance: FISH OIL
  2. GLUCOSAMINE [Concomitant]
     Active Substance: GLUCOSAMINE
  3. HAIR AGAIN 5% [Suspect]
     Active Substance: MINOXIDIL
     Indication: ALOPECIA
     Dosage: APPLIED TO A SURFACE, UAUSALLY THE SKIN
     Dates: start: 20160306, end: 20160506
  4. MULTI VITAMINS [Concomitant]
     Active Substance: VITAMINS

REACTIONS (2)
  - Emotional distress [None]
  - Hair growth abnormal [None]

NARRATIVE: CASE EVENT DATE: 20160606
